FAERS Safety Report 5848071-X (Version None)
Quarter: 2008Q3

REPORT INFORMATION
  Report Type: 
  Country: None (occurrence: None)
  Receive Date: 20080814
  Receipt Date: 20080814
  Transmission Date: 20090109
  Serious: Yes (Hospitalization)
  Sender: FDA-Public Use
  Company Number: None

PATIENT
  Sex: Male
  Weight: 81.65 kg

DRUGS (10)
  1. SUNITINIB [Suspect]
     Indication: PROSTATE CANCER
     Dosage: 37.5MG/DAY/ORAL/PILL
     Route: 048
  2. SUNITINIB [Suspect]
     Indication: PROSTATE CANCER
     Dosage: 37.5MG/DAY/ORAL/PILL
     Route: 048
  3. ORAL ACCUPRIL [Concomitant]
  4. ORAL TRICOR [Concomitant]
  5. ORAL NORVASC [Concomitant]
  6. ORAL ASPIRIN [Concomitant]
  7. ORAL LIPITOR [Concomitant]
  8. HANDIHALER SPIRIVA [Concomitant]
  9. ALBUTEROL [Concomitant]
  10. ORAL PROLOSEC [Concomitant]

REACTIONS (4)
  - HAEMOGLOBIN DECREASED [None]
  - HAEMORRHAGE [None]
  - IDIOPATHIC THROMBOCYTOPENIC PURPURA [None]
  - WHITE BLOOD CELL COUNT DECREASED [None]
